FAERS Safety Report 18251748 (Version 1)
Quarter: 2020Q3

REPORT INFORMATION
  Report Type: Spontaneous
  Country: IN (occurrence: IN)
  Receive Date: 20200910
  Receipt Date: 20200910
  Transmission Date: 20201103
  Serious: Yes (Other)
  Sender: FDA-Public Use
  Company Number: IN-LUPIN LIMITED-2020-02997

PATIENT
  Age: 45 Year
  Sex: Male

DRUGS (1)
  1. METHYLPREDNISOLONE. [Suspect]
     Active Substance: METHYLPREDNISOLONE
     Indication: BURKHOLDERIA PSEUDOMALLEI INFECTION
     Dosage: 1 GRAM, QD
     Route: 065

REACTIONS (3)
  - Muscular weakness [Unknown]
  - Disease progression [Unknown]
  - Unintentional use for unapproved indication [Unknown]
